FAERS Safety Report 4461152-0 (Version None)
Quarter: 2004Q3

REPORT INFORMATION
  Report Type: 
  Country: None (occurrence: None)
  Receive Date: 20040923
  Receipt Date: 20040909
  Transmission Date: 20050211
  Serious: Yes (Hospitalization)
  Sender: FDA-Public Use
  Company Number: 2004-BP-07931BP

PATIENT
  Age: 70 Year
  Sex: Female

DRUGS (7)
  1. SPIRIVA [Suspect]
     Indication: CHRONIC OBSTRUCTIVE AIRWAYS DISEASE
     Dosage: 18 MCG (18 MCG) IH
     Route: 055
     Dates: start: 20040909
  2. ATENOLOL [Concomitant]
  3. CALTRATE (CALCIUM CARBONATE) [Concomitant]
  4. EVISTA [Concomitant]
  5. SINGULAIR [Concomitant]
  6. MAXAIR [Concomitant]
  7. PROVENTIL (SALBUTAMOL SULFATE) [Concomitant]

REACTIONS (4)
  - BLOOD PRESSURE INCREASED [None]
  - ELECTROCARDIOGRAM ABNORMAL [None]
  - MYOCARDIAL INFARCTION [None]
  - PALPITATIONS [None]
